FAERS Safety Report 10958306 (Version 1)
Quarter: 2015Q1

REPORT INFORMATION
  Report Type: Report from Study
  Country: BR (occurrence: BR)
  Receive Date: 20150326
  Receipt Date: 20150326
  Transmission Date: 20150721
  Serious: Yes (Death, Hospitalization)
  Sender: FDA-Public Use
  Company Number: BR-ABBVIE-15K-020-1366246-00

PATIENT
  Age: 65 Year
  Sex: Female

DRUGS (1)
  1. HUMIRA [Suspect]
     Active Substance: ADALIMUMAB
     Indication: ANKYLOSING SPONDYLITIS
     Route: 065
     Dates: start: 20141016

REACTIONS (4)
  - Pulmonary sepsis [Fatal]
  - Atypical pneumonia [Fatal]
  - Pain [Unknown]
  - Immunodeficiency [Fatal]

NARRATIVE: CASE EVENT DATE: 20150207
